FAERS Safety Report 13163262 (Version 1)
Quarter: 2017Q1

REPORT INFORMATION
  Report Type: Spontaneous
  Country: US (occurrence: US)
  Receive Date: 20170129
  Receipt Date: 20170129
  Transmission Date: 20170428
  Serious: Yes (Hospitalization)
  Sender: FDA-Public Use
  Company Number: None

PATIENT
  Age: 45 Year
  Sex: Female
  Weight: 65.25 kg

DRUGS (2)
  1. BOTOX [Suspect]
     Active Substance: ONABOTULINUMTOXINA
     Indication: SKIN WRINKLING
     Dosage: ?          QUANTITY:2 INJECTION(S);OTHER FREQUENCY:ONCE;OTHER ROUTE:INJECTED INTO FOREHEAD?
     Dates: start: 20170126, end: 20170126
  2. ZINC. [Concomitant]
     Active Substance: ZINC

REACTIONS (10)
  - Diarrhoea [None]
  - Muscular weakness [None]
  - Feeding disorder [None]
  - Asthenia [None]
  - Migraine [None]
  - Urinary tract infection [None]
  - Visual impairment [None]
  - Fatigue [None]
  - Nausea [None]
  - Neck pain [None]

NARRATIVE: CASE EVENT DATE: 20170127
